FAERS Safety Report 10374668 (Version 1)
Quarter: 2014Q3

REPORT INFORMATION
  Report Type: Spontaneous
  Country: US (occurrence: US)
  Receive Date: 20140811
  Receipt Date: 20140811
  Transmission Date: 20150326
  Serious: Yes (Hospitalization)
  Sender: FDA-Public Use
  Company Number: US-SUN PHARMACEUTICAL INDUSTRIES LTD-2014SUN01790

PATIENT

DRUGS (8)
  1. QUETIAPINE FUMARATE 50MG TABLETS [Suspect]
     Active Substance: QUETIAPINE FUMARATE
     Dosage: 100 MG, BID
     Route: 048
  2. PALIPERIDONE [Suspect]
     Active Substance: PALIPERIDONE
     Indication: SCHIZOAFFECTIVE DISORDER
     Dosage: 3 MG, DAILY
     Route: 048
  3. LITHIUM CARBONATE. [Suspect]
     Active Substance: LITHIUM CARBONATE
     Indication: SCHIZOAFFECTIVE DISORDER
     Dosage: 900 MG, DAILY
     Route: 048
  4. HALOPERIDOL. [Suspect]
     Active Substance: HALOPERIDOL
     Indication: SCHIZOAFFECTIVE DISORDER
     Dosage: 5 MG, DAILY
     Route: 048
  5. BENZTROPINE [Concomitant]
     Active Substance: BENZTROPINE
     Indication: SCHIZOAFFECTIVE DISORDER
     Dosage: 1 MG, BID
     Route: 048
  6. QUETIAPINE FUMARATE 50MG TABLETS [Suspect]
     Active Substance: QUETIAPINE FUMARATE
     Indication: SCHIZOAFFECTIVE DISORDER
     Dosage: 25MG IN THE MORNING AND 50 MG AT BEDTIME
     Route: 048
  7. ZIPRASIDONE [Suspect]
     Active Substance: ZIPRASIDONE
     Indication: SCHIZOAFFECTIVE DISORDER
     Dosage: 60 MG, BID
     Route: 048
  8. PALIPERIDONE [Suspect]
     Active Substance: PALIPERIDONE
     Dosage: 9 MG, DAILY
     Route: 048

REACTIONS (1)
  - Rhabdomyolysis [Recovered/Resolved]
